FAERS Safety Report 8069818-0 (Version None)
Quarter: 2012Q1

REPORT INFORMATION
  Report Type: 
  Country: None (occurrence: None)
  Receive Date: 20120125
  Receipt Date: 20120125
  Transmission Date: 20120608
  Serious: Yes (Other)
  Sender: FDA-Public Use
  Company Number: None

PATIENT
  Sex: Female

DRUGS (1)
  1. COPAXONE [Suspect]
     Indication: MULTIPLE SCLEROSIS
     Dosage: 20.0 MG
     Route: 058

REACTIONS (4)
  - PALPITATIONS [None]
  - ANAPHYLACTIC REACTION [None]
  - FLUSHING [None]
  - CHEST DISCOMFORT [None]
